FAERS Safety Report 6866309-7 (Version None)
Quarter: 2010Q3

REPORT INFORMATION
  Report Type: 
  Country: None (occurrence: None)
  Receive Date: 20100722
  Receipt Date: 20100716
  Transmission Date: 20110219
  Serious: Yes (Death, Other)
  Sender: FDA-Public Use
  Company Number: MX-WYE-H15963610

PATIENT
  Age: 58 Year
  Sex: Male

DRUGS (1)
  1. TYGACIL [Suspect]
     Dosage: UNKNOWN

REACTIONS (2)
  - CHOLESTASIS [None]
  - SEPSIS [None]
